FAERS Safety Report 9547297 (Version 1)
Quarter: 2013Q2

REPORT INFORMATION
  Report Type: Spontaneous
  Country: US (occurrence: None)
  Receive Date: 20130524
  Receipt Date: 20130524
  Transmission Date: 20140414
  Serious: No
  Sender: FDA-Public Use
  Company Number: PHEH2012US024041

PATIENT
  Sex: Female
  Weight: 52.2 kg

DRUGS (1)
  1. GILENYA (FINGOLIMOD) CAPSULE, 0.5MG [Suspect]
     Indication: MULTIPLE SCLEROSIS
     Route: 048
     Dates: start: 201207

REACTIONS (5)
  - Stress at work [None]
  - Memory impairment [None]
  - Insomnia [None]
  - Cognitive disorder [None]
  - Depressed mood [None]
